FAERS Safety Report 24381116 (Version 9)
Quarter: 2025Q3

REPORT INFORMATION
  Report Type: Report from Study
  Country: JP (occurrence: JP)
  Receive Date: 20240930
  Receipt Date: 20250918
  Transmission Date: 20251020
  Serious: Yes (Other)
  Sender: ABBVIE
  Company Number: JP-TAKEDA-2018TJP001581

PATIENT
  Age: 48 Year
  Sex: Male
  Weight: 54.7 kg

DRUGS (40)
  1. LEUPROLIDE ACETATE [Suspect]
     Active Substance: LEUPROLIDE ACETATE
     Indication: Bulbospinal muscular atrophy congenital
     Dosage: 11.25 MILLIGRAM, Q3MONTHS
     Route: 058
     Dates: start: 20171027
  2. CYANOCOBALAMIN\PYRIDOXINE HYDROCHLORIDE\THIAMINE [Concomitant]
     Active Substance: CYANOCOBALAMIN\PYRIDOXINE HYDROCHLORIDE\THIAMINE
     Indication: Bulbospinal muscular atrophy congenital
     Dates: end: 20200707
  3. REBAMIPIDE [Concomitant]
     Active Substance: REBAMIPIDE
     Indication: Bulbospinal muscular atrophy congenital
     Route: 065
     Dates: start: 20241004, end: 20241224
  4. LOXOPROFEN SODIUM [Concomitant]
     Active Substance: LOXOPROFEN SODIUM
     Indication: Bulbospinal muscular atrophy congenital
     Route: 065
     Dates: start: 20180828, end: 20180828
  5. LOXOPROFEN SODIUM [Concomitant]
     Active Substance: LOXOPROFEN SODIUM
     Indication: Bulbospinal muscular atrophy congenital
     Route: 065
     Dates: start: 20180829, end: 20190411
  6. LOXOPROFEN SODIUM [Concomitant]
     Active Substance: LOXOPROFEN SODIUM
     Indication: Bulbospinal muscular atrophy congenital
     Route: 065
     Dates: start: 20190412, end: 20200414
  7. LOXOPROFEN SODIUM [Concomitant]
     Active Substance: LOXOPROFEN SODIUM
     Indication: Bulbospinal muscular atrophy congenital
     Route: 065
     Dates: start: 20241004, end: 20241224
  8. CYTOTEC [Concomitant]
     Active Substance: MISOPROSTOL
     Indication: Product used for unknown indication
     Route: 065
     Dates: end: 20180828
  9. CYTOTEC [Concomitant]
     Active Substance: MISOPROSTOL
     Indication: Product used for unknown indication
     Route: 065
     Dates: start: 20180829, end: 20190411
  10. CYTOTEC [Concomitant]
     Active Substance: MISOPROSTOL
     Indication: Product used for unknown indication
     Route: 065
     Dates: start: 20190412, end: 20200414
  11. RILUZOLE [Concomitant]
     Active Substance: RILUZOLE
     Indication: Bulbospinal muscular atrophy congenital
     Route: 065
     Dates: end: 20180712
  12. RILUZOLE [Concomitant]
     Active Substance: RILUZOLE
     Indication: Bulbospinal muscular atrophy congenital
     Route: 065
     Dates: start: 20180713, end: 20181009
  13. KETOPROFEN [Concomitant]
     Active Substance: KETOPROFEN
     Indication: Bulbospinal muscular atrophy congenital
     Route: 065
     Dates: start: 20240412, end: 20241003
  14. ACETAMINOPHEN [Concomitant]
     Active Substance: ACETAMINOPHEN
     Indication: Bulbospinal muscular atrophy congenital
     Route: 065
     Dates: start: 20220819, end: 20221110
  15. ACETAMINOPHEN [Concomitant]
     Active Substance: ACETAMINOPHEN
     Indication: Bulbospinal muscular atrophy congenital
     Route: 048
     Dates: start: 20240412, end: 20241003
  16. ACETAMINOPHEN [Concomitant]
     Active Substance: ACETAMINOPHEN
     Indication: Bulbospinal muscular atrophy congenital
     Route: 065
     Dates: start: 20220819, end: 20221110
  17. ACETAMINOPHEN [Concomitant]
     Active Substance: ACETAMINOPHEN
     Indication: Bulbospinal muscular atrophy congenital
     Route: 065
     Dates: start: 20240412, end: 20241003
  18. METHYLCOBALAMIN [Concomitant]
     Active Substance: METHYLCOBALAMIN
     Indication: Bulbospinal muscular atrophy congenital
     Route: 065
     Dates: start: 20230901
  19. ASPIRIN [Concomitant]
     Active Substance: ASPIRIN
     Indication: Cerebral infarction
     Route: 065
     Dates: start: 20180508, end: 20180604
  20. CLOTIAZEPAM [Concomitant]
     Active Substance: CLOTIAZEPAM
     Indication: Insomnia
     Route: 065
     Dates: start: 20181010, end: 20181129
  21. VOLTAREN [Concomitant]
     Active Substance: DICLOFENAC SODIUM
     Indication: Bulbospinal muscular atrophy congenital
     Dates: start: 20230901, end: 20231026
  22. VITAMINS [Concomitant]
     Active Substance: VITAMINS
     Indication: Bulbospinal muscular atrophy congenital
     Route: 065
     Dates: start: 20200708, end: 20210622
  23. VITAMINS [Concomitant]
     Active Substance: VITAMINS
     Indication: Bulbospinal muscular atrophy congenital
     Route: 065
     Dates: start: 20210623, end: 20230830
  24. ZOLPIDEM TARTRATE [Concomitant]
     Active Substance: ZOLPIDEM TARTRATE
     Indication: Product used for unknown indication
     Route: 065
     Dates: start: 20190111
  25. NEUROTROPIN [Concomitant]
     Active Substance: NEUROTROPIN
     Indication: Bulbospinal muscular atrophy congenital
     Route: 065
     Dates: start: 20230203, end: 20240118
  26. KETOPROFEN [Concomitant]
     Active Substance: KETOPROFEN
     Indication: Bulbospinal muscular atrophy congenital
     Route: 065
     Dates: end: 20200414
  27. KETOPROFEN [Concomitant]
     Active Substance: KETOPROFEN
     Indication: Bulbospinal muscular atrophy congenital
     Route: 065
     Dates: start: 20200415, end: 20210914
  28. KETOPROFEN [Concomitant]
     Active Substance: KETOPROFEN
     Indication: Bulbospinal muscular atrophy congenital
     Route: 065
     Dates: start: 20241004, end: 20250610
  29. Astomin [Concomitant]
     Indication: Bulbospinal muscular atrophy congenital
     Route: 065
     Dates: start: 20250319
  30. TELMISARTAN [Concomitant]
     Active Substance: TELMISARTAN
     Indication: Product used for unknown indication
     Route: 065
     Dates: start: 20201007
  31. AMLODIPINE BESYLATE [Concomitant]
     Active Substance: AMLODIPINE BESYLATE
     Indication: Product used for unknown indication
     Route: 065
     Dates: end: 20200301
  32. OLMESARTAN [Concomitant]
     Active Substance: OLMESARTAN
     Indication: Product used for unknown indication
     Route: 065
     Dates: start: 20190529
  33. DULOXETINE [Concomitant]
     Active Substance: DULOXETINE
     Indication: Bulbospinal muscular atrophy congenital
     Dates: start: 20230728, end: 20230803
  34. DULOXETINE [Concomitant]
     Active Substance: DULOXETINE
     Indication: Bulbospinal muscular atrophy congenital
     Dates: start: 20230804
  35. ENALAPRIL [Concomitant]
     Active Substance: ENALAPRIL
     Indication: Product used for unknown indication
     Route: 065
     Dates: end: 20180118
  36. CYMBALTA [Suspect]
     Active Substance: DULOXETINE HYDROCHLORIDE
     Indication: Bulbospinal muscular atrophy congenital
     Route: 065
     Dates: start: 20190529, end: 20190704
  37. CYMBALTA [Suspect]
     Active Substance: DULOXETINE HYDROCHLORIDE
     Indication: Bulbospinal muscular atrophy congenital
     Route: 065
     Dates: start: 20190705, end: 20190820
  38. KETOPROFEN [Concomitant]
     Active Substance: KETOPROFEN
     Indication: Bulbospinal muscular atrophy congenital
     Route: 065
     Dates: start: 2023, end: 20231026
  39. Enalapril maleate amel [Concomitant]
     Indication: Hypertension
     Dates: start: 20181130, end: 20190228
  40. Enalapril maleate amel [Concomitant]
     Indication: Hypertension
     Dates: start: 20190301, end: 20190528

REACTIONS (40)
  - Blood creatine phosphokinase increased [Recovering/Resolving]
  - Muscular weakness [Recovered/Resolved]
  - Malaise [Recovered/Resolved]
  - Memory impairment [Recovered/Resolved]
  - Arthralgia [Recovered/Resolved]
  - Nausea [Recovered/Resolved]
  - Dizziness [Recovered/Resolved]
  - Trigger finger [Recovering/Resolving]
  - Vertigo [Recovered/Resolved]
  - Oropharyngeal discomfort [Recovered/Resolved]
  - Pruritus [Recovered/Resolved]
  - Headache [Recovered/Resolved]
  - Hypertension [Recovering/Resolving]
  - Insomnia [Recovered/Resolved]
  - Tenosynovitis [Recovered/Resolved]
  - Productive cough [Recovering/Resolving]
  - Abdominal pain upper [Recovered/Resolved]
  - Palmoplantar pustulosis [Recovered/Resolved]
  - Trigger finger [Recovered/Resolved]
  - Tenosynovitis [Recovered/Resolved]
  - Oropharyngeal discomfort [Recovered/Resolved]
  - Alanine aminotransferase increased [Recovered/Resolved]
  - Trigger finger [Not Recovered/Not Resolved]
  - Blood lactate dehydrogenase increased [Recovering/Resolving]
  - Aspartate aminotransferase increased [Recovering/Resolving]
  - Constipation [Recovered/Resolved]
  - Sputum increased [Recovering/Resolving]
  - Chromaturia [Recovering/Resolving]
  - Abdominal pain [Recovering/Resolving]
  - Urine odour abnormal [Recovering/Resolving]
  - Oropharyngeal discomfort [Recovering/Resolving]
  - Palmoplantar pustulosis [Recovering/Resolving]
  - Pollakiuria [Recovered/Resolved]
  - Pain in extremity [Recovering/Resolving]
  - Urinary occult blood [Recovering/Resolving]
  - Blood testosterone decreased [Not Recovered/Not Resolved]
  - Insomnia [Recovering/Resolving]
  - Insomnia [Recovering/Resolving]
  - Abdominal pain [Recovering/Resolving]
  - Haematuria [Recovered/Resolved]

NARRATIVE: CASE EVENT DATE: 20171001
